FAERS Safety Report 8623898-X (Version None)
Quarter: 2012Q3

REPORT INFORMATION
  Report Type: 
  Country: None (occurrence: None)
  Receive Date: 20120827
  Receipt Date: 20120817
  Transmission Date: 20120928
  Serious: Yes (Hospitalization, Other)
  Sender: FDA-Public Use
  Company Number: US-009507513-1202USA00214

PATIENT

DRUGS (2)
  1. FOSAMAX [Suspect]
     Indication: OSTEOPOROSIS
     Dosage: 70 MG, QW
     Route: 048
     Dates: start: 19990701, end: 20100301
  2. FOSAMAX [Suspect]
     Indication: OSTEOPENIA

REACTIONS (31)
  - LUMBAR SPINAL STENOSIS [None]
  - SCOLIOSIS [None]
  - COUGH [None]
  - RENAL CYST [None]
  - FEMUR FRACTURE [None]
  - OSTEOARTHRITIS [None]
  - INTERMITTENT CLAUDICATION [None]
  - DIARRHOEA [None]
  - HAEMORRHOIDS [None]
  - RENAL DISORDER [None]
  - SPONDYLOLISTHESIS [None]
  - BASAL CELL CARCINOMA [None]
  - MIGRAINE [None]
  - HEPATIC CYST [None]
  - PACKED RED BLOOD CELL TRANSFUSION [None]
  - AORTIC ARTERIOSCLEROSIS [None]
  - FIBROMYALGIA [None]
  - PLANTAR FASCIITIS [None]
  - ARTHROPATHY [None]
  - ROTATOR CUFF SYNDROME [None]
  - CHOLELITHIASIS [None]
  - OPEN REDUCTION OF FRACTURE [None]
  - SPINAL OSTEOARTHRITIS [None]
  - GASTROOESOPHAGEAL REFLUX DISEASE [None]
  - ADVERSE DRUG REACTION [None]
  - URINARY TRACT INFECTION [None]
  - GROIN PAIN [None]
  - ARTHRALGIA [None]
  - JOINT SWELLING [None]
  - BREAST DISCHARGE [None]
  - DIVERTICULUM [None]
